FAERS Safety Report 25943877 (Version 1)
Quarter: 2025Q4

REPORT INFORMATION
  Report Type: Spontaneous
  Country: US (occurrence: US)
  Receive Date: 20251021
  Receipt Date: 20251021
  Transmission Date: 20260119
  Serious: Yes (Other)
  Sender: SHILPA MEDICARE
  Company Number: US-KOANAAP-SML-US-2025-00497

PATIENT
  Age: 62 Year
  Sex: Female

DRUGS (1)
  1. APREMILAST [Suspect]
     Active Substance: APREMILAST
     Indication: Psoriasis

REACTIONS (4)
  - Anhedonia [Recovered/Resolved]
  - Feeling guilty [Recovered/Resolved]
  - Feeling of despair [Recovered/Resolved]
  - Affect lability [Recovered/Resolved]
